FAERS Safety Report 4517026-X (Version None)
Quarter: 2005Q1

REPORT INFORMATION
  Report Type: 
  Country: None (occurrence: None)
  Receive Date: 20041029
  Receipt Date: 20040928
  Transmission Date: 20050727
  Serious: No
  Sender: FDA-Public Use
  Company Number: 2004-120691-NL

PATIENT
  Age: 27 Year
  Sex: Female

DRUGS (6)
  1. NUVARING [Suspect]
     Indication: CONTRACEPTION
     Dosage: DF DAILY VAGINAL
     Route: 067
     Dates: start: 20040822, end: 20040924
  2. HUMALOG [Concomitant]
  3. UNITHROID [Concomitant]
  4. EQUATE [Concomitant]
  5. VAGINAL CREAM [Concomitant]
  6. VAGINAL SUPPOSITORY [Concomitant]

REACTIONS (4)
  - DEVICE FAILURE [None]
  - MEDICAL DEVICE DISCOMFORT [None]
  - VAGINAL MYCOSIS [None]
  - WITHDRAWAL BLEED [None]
